FAERS Safety Report 12435212 (Version 1)
Quarter: 2016Q2

REPORT INFORMATION
  Report Type: Spontaneous
  Country: US (occurrence: US)
  Receive Date: 20160603
  Receipt Date: 20160603
  Transmission Date: 20160815
  Serious: No
  Sender: FDA-Public Use
  Company Number: US-ROCHE-1635826

PATIENT
  Age: 73 Year
  Sex: Female

DRUGS (3)
  1. XELODA [Suspect]
     Active Substance: CAPECITABINE
     Indication: BREAST CANCER
     Route: 065
     Dates: start: 20150916
  2. AMOXICLAV [Concomitant]
     Active Substance: AMOXICILLIN\CLAVULANIC ACID
     Indication: ANIMAL BITE
     Route: 065
     Dates: start: 20150915
  3. SIMVASTATIN. [Concomitant]
     Active Substance: SIMVASTATIN
     Indication: BLOOD CHOLESTEROL INCREASED
     Dosage: FOR 2 OR 3 YEARS
     Route: 065

REACTIONS (3)
  - Vomiting [Unknown]
  - Fatigue [Unknown]
  - Eructation [Unknown]

NARRATIVE: CASE EVENT DATE: 20150916
